FAERS Safety Report 24372850 (Version 1)
Quarter: 2024Q3

REPORT INFORMATION
  Report Type: Spontaneous
  Country: BR (occurrence: BR)
  Receive Date: 20240927
  Receipt Date: 20240927
  Transmission Date: 20241016
  Serious: Yes (Other)
  Sender: RK PHARMA
  Company Number: BR-RK PHARMA, INC-20240900057

PATIENT

DRUGS (2)
  1. MITOMYCIN [Suspect]
     Active Substance: MITOMYCIN
     Indication: Ocular surface squamous neoplasia
     Dosage: UNK, QID (EVERY 6 H)
     Route: 061
  2. FLUOROMETHOLONE ACETATE [Suspect]
     Active Substance: FLUOROMETHOLONE ACETATE
     Indication: Ocular surface squamous neoplasia
     Route: 061

REACTIONS (1)
  - Corneal thinning [Recovered/Resolved]
